FAERS Safety Report 7039033-8 (Version None)
Quarter: 2010Q4

REPORT INFORMATION
  Report Type: 
  Country: None (occurrence: None)
  Receive Date: 20101012
  Receipt Date: 20100930
  Transmission Date: 20110411
  Serious: Yes (Hospitalization)
  Sender: FDA-Public Use
  Company Number: US-ELI_LILLY_AND_COMPANY-US201004003588

PATIENT
  Sex: Female

DRUGS (11)
  1. FORTEO [Suspect]
     Indication: OSTEOPOROSIS
     Dosage: 20 UG, DAILY (1/D)
     Route: 065
  2. LEVOTHYROXINE [Concomitant]
     Dosage: 175 UG, DAILY (1/D)
  3. TRAMADOL [Concomitant]
     Indication: PAIN
     Dosage: 50 MG, EVERY 8 HRS
  4. MORPHINE [Concomitant]
     Dosage: 15 MG, DAILY (1/D)
  5. ASPIRIN [Concomitant]
     Dosage: UNK, DAILY (1/D)
  6. IBUPROFEN [Concomitant]
  7. LISINOPRIL [Concomitant]
     Dosage: 5 MG, DAILY (1/D)
  8. METOPROLOL TARTRATE [Concomitant]
     Dosage: 12.5 MG, 2/D
  9. AMITRIPTYLINE [Concomitant]
     Dosage: 2 D/F, DAILY (1/D) AT NIGHT
  10. DIAZEPAM [Concomitant]
     Indication: ANXIETY
     Dosage: 10 MG, AS NEEDED
  11. FUROSEMIDE [Concomitant]
     Dosage: 40 MG, DAILY (1/D)

REACTIONS (3)
  - DEHYDRATION [None]
  - MALAISE [None]
  - PAIN [None]
